FAERS Safety Report 6569449-5 (Version None)
Quarter: 2010Q1

REPORT INFORMATION
  Report Type: 
  Country: None (occurrence: None)
  Receive Date: 20100202
  Receipt Date: 20100202
  Transmission Date: 20100710
  Serious: Yes (Other)
  Sender: FDA-Public Use
  Company Number: None

PATIENT
  Age: 52 Year
  Sex: Female
  Weight: 68.0396 kg

DRUGS (1)
  1. PRIALT [Suspect]
     Indication: PAIN
     Dates: start: 20090701

REACTIONS (5)
  - GRAFT COMPLICATION [None]
  - HYPERSENSITIVITY [None]
  - MEDICAL DEVICE COMPLICATION [None]
  - THERMAL BURN [None]
  - TINNITUS [None]
